FAERS Safety Report 6661137-X (Version None)
Quarter: 2010Q1

REPORT INFORMATION
  Report Type: 
  Country: None (occurrence: None)
  Receive Date: 20100331
  Receipt Date: 20100325
  Transmission Date: 20100710
  Serious: Yes (Hospitalization)
  Sender: FDA-Public Use
  Company Number: A0775936A

PATIENT
  Age: 71 Year
  Sex: Male
  Weight: 105.9 kg

DRUGS (7)
  1. AVANDIA [Suspect]
     Dosage: 4MG PER DAY
     Route: 048
     Dates: start: 20010101, end: 20070501
  2. NORVASC [Concomitant]
  3. LOPID [Concomitant]
  4. ALLOPURINOL [Concomitant]
  5. TOPROL-XL [Concomitant]
  6. AMIODARONE HCL [Concomitant]
  7. FERROUS SULFATE TAB [Concomitant]

REACTIONS (4)
  - ATRIOVENTRICULAR BLOCK [None]
  - MYOCARDIAL INFARCTION [None]
  - MYOCARDIAL ISCHAEMIA [None]
  - SYNCOPE [None]
